FAERS Safety Report 18007243 (Version 1)
Quarter: 2020Q3

REPORT INFORMATION
  Report Type: Spontaneous
  Country: CO (occurrence: CO)
  Receive Date: 20200707
  Receipt Date: 20200707
  Transmission Date: 20201103
  Serious: No
  Sender: FDA-Public Use
  Company Number: None

PATIENT
  Age: 28 Year
  Sex: Male
  Weight: 65 kg

DRUGS (30)
  1. FLUCONAZOL [Concomitant]
     Active Substance: FLUCONAZOLE
  2. NEUROESSENS [Concomitant]
  3. PHOSPHORH [Concomitant]
  4. PLUSBIOTIC [Concomitant]
  5. LITHIUM. [Concomitant]
     Active Substance: LITHIUM
  6. CORTICOIDS [Concomitant]
     Active Substance: UNSPECIFIED INGREDIENT
  7. NERALGO RHEM [Concomitant]
  8. COMPO X [Concomitant]
  9. FLUMICIL [Concomitant]
  10. ANTIDEPRESSIVE [Concomitant]
  11. NISTATINA [Concomitant]
     Active Substance: NYSTATIN
  12. MYOCESSENS [Concomitant]
  13. MAGNESIO [Concomitant]
  14. MARIHUANA MEDICINE [Concomitant]
  15. TCA [Concomitant]
  16. COMPLEX B [Concomitant]
     Active Substance: CALCIUM PANTOTHENATE\CYANOCOBALAMIN\NIACINAMIDE\PYRIDOXINE HYDROCHLORIDE\RIBOFLAVIN\THIAMINE MONONITRATE
  17. PREGABALINA [Concomitant]
     Active Substance: PREGABALIN
  18. CEREBRUM [Concomitant]
  19. CORAESSENS [Concomitant]
  20. CALMESSENS [Concomitant]
  21. CURCUMA [Concomitant]
     Active Substance: HERBALS\TURMERIC
  22. ARCALION [Concomitant]
     Active Substance: SULBUTIAMINE
  23. SPIGELON [Concomitant]
  24. VITAMIN C MEGA DOSIS [Concomitant]
  25. BELAYE [Concomitant]
  26. MMS ? CHLORINE DIOXIDE [Suspect]
     Active Substance: CHLORINE DIOXIDE
     Indication: DERMATITIS
     Dosage: ?          OTHER ROUTE:5 DROPS SWALLOWED?
     Dates: start: 20180404, end: 20180422
  27. FLUMICIL [Concomitant]
  28. MENZODIACECEPINA [Concomitant]
  29. HEPAR C [Concomitant]
  30. METABESSENS [Concomitant]

REACTIONS (10)
  - Burning sensation [None]
  - Dizziness [None]
  - Laboratory test abnormal [None]
  - Feeling abnormal [None]
  - Anxiety [None]
  - Thinking abnormal [None]
  - Tic [None]
  - Headache [None]
  - Chills [None]
  - Confusional state [None]

NARRATIVE: CASE EVENT DATE: 20200704
